FAERS Safety Report 6412915-3 (Version None)
Quarter: 2009Q4

REPORT INFORMATION
  Report Type: 
  Country: None (occurrence: None)
  Receive Date: 20091023
  Receipt Date: 20091012
  Transmission Date: 20100525
  Serious: Yes (Life-Threatening)
  Sender: FDA-Public Use
  Company Number: CN-TYCO HEALTHCARE/MALLINCKRODT-T200901888

PATIENT
  Age: 41 Year
  Sex: Male

DRUGS (9)
  1. MEPERIDINE [Suspect]
     Indication: ANALGESIC THERAPY
     Dosage: 30 MG, SINGLE
     Route: 042
  2. BISOPROLOL [Concomitant]
     Indication: HYPERTENSION
  3. AMLODIPINE [Concomitant]
     Indication: HYPERTENSION
  4. FENTANYL-100 [Concomitant]
     Indication: INDUCTION OF ANAESTHESIA
     Dosage: 150 UG, SINGLE
     Route: 042
  5. PROPOFOL [Concomitant]
     Indication: INDUCTION OF ANAESTHESIA
     Dosage: 150 MG, SINGLE
     Route: 042
  6. GLYCOPYRROLATE                     /00196202/ [Concomitant]
     Indication: INDUCTION OF ANAESTHESIA
     Dosage: 0.2 MG, SINGLE
     Route: 042
  7. ROCURONIUM BROMIDE [Concomitant]
     Indication: INDUCTION OF ANAESTHESIA
     Dosage: 50 MG, SINGLE
     Route: 042
  8. OXYGEN [Concomitant]
     Indication: MAINTENANCE OF ANAESTHESIA
  9. DESFLURANE [Concomitant]
     Indication: GENERAL ANAESTHESIA

REACTIONS (1)
  - SEROTONIN SYNDROME [None]
